FAERS Safety Report 7403378-X (Version None)
Quarter: 2011Q2

REPORT INFORMATION
  Report Type: 
  Country: None (occurrence: None)
  Receive Date: 20110408
  Receipt Date: 20101124
  Transmission Date: 20111010
  Serious: Yes (Hospitalization)
  Sender: FDA-Public Use
  Company Number: A0897702A

PATIENT
  Age: 58 Year
  Sex: Female

DRUGS (1)
  1. AVANDIA [Suspect]
     Dosage: 8MG PER DAY
     Route: 048
     Dates: start: 20011121, end: 20060817

REACTIONS (5)
  - DYSPNOEA [None]
  - ARTERIOSCLEROSIS [None]
  - PAIN [None]
  - CATHETERISATION CARDIAC [None]
  - CHEST PAIN [None]
